FAERS Safety Report 14014534 (Version 1)
Quarter: 2017Q3

REPORT INFORMATION
  Report Type: Report from Study
  Country: US (occurrence: US)
  Receive Date: 20170927
  Receipt Date: 20170927
  Transmission Date: 20171128
  Serious: Yes (Hospitalization, Other)
  Sender: FDA-Public Use
  Company Number: US-ROCHE-1543153

PATIENT
  Age: 59 Year
  Sex: Female
  Weight: 69.8 kg

DRUGS (29)
  1. INSULIN GLARGINE [Concomitant]
     Active Substance: INSULIN GLARGINE
     Dosage: 100 UNIT/ML?INJECTION: 8 UNITS
     Route: 065
  2. HEPARIN [Concomitant]
     Active Substance: HEPARIN SODIUM
     Route: 058
  3. ONDANSETRON [Concomitant]
     Active Substance: ONDANSETRON
     Dosage: PRN
     Route: 042
  4. BISACODYL. [Concomitant]
     Active Substance: BISACODYL
     Dosage: PRN
     Route: 054
  5. PROPOFOL. [Concomitant]
     Active Substance: PROPOFOL
     Dosage: 125 MICROGRAM/KG/MIN
     Route: 042
     Dates: start: 20150219
  6. ASPIRIN. [Concomitant]
     Active Substance: ASPIRIN
     Route: 048
  7. REPAGLINIDE. [Concomitant]
     Active Substance: REPAGLINIDE
     Route: 048
  8. PROPOFOL. [Concomitant]
     Active Substance: PROPOFOL
     Route: 042
     Dates: start: 20150219
  9. LOVASTATIN. [Concomitant]
     Active Substance: LOVASTATIN
     Route: 048
  10. BEVACIZUMAB. [Suspect]
     Active Substance: BEVACIZUMAB
     Indication: BRAIN NEOPLASM MALIGNANT
     Dosage: DATE OF LAST DOSE PRIOR TO EVENT: 30/JAN/2015
     Route: 042
     Dates: start: 20130724, end: 20150220
  11. GLUCOSE [Concomitant]
     Active Substance: DEXTROSE
     Dosage: PRN
     Route: 048
  12. MORPHINE [Concomitant]
     Active Substance: MORPHINE
     Dosage: 2-4 MG?PRN
     Route: 042
  13. CLOBETASOL [Concomitant]
     Active Substance: CLOBETASOL
     Dosage: 0.05 PERCENT
     Route: 065
  14. UREA. [Concomitant]
     Active Substance: UREA
     Dosage: 40 PERCENT.?EVERY BEDTIME?APPLY TO AFFECTED AREA AS DIRECTED
     Route: 061
  15. METFORMIN HYDROCHLORIDE. [Concomitant]
     Active Substance: METFORMIN HYDROCHLORIDE
     Route: 048
  16. PIPERACILLIN/TAZOBACTAM [Concomitant]
     Active Substance: PIPERACILLIN SODIUM\TAZOBACTAM SODIUM
     Route: 042
  17. CAPECITABINE. [Suspect]
     Active Substance: CAPECITABINE
     Indication: BRAIN NEOPLASM MALIGNANT
     Route: 065
  18. VITAMIN D3 [Concomitant]
     Active Substance: CHOLECALCIFEROL
     Route: 048
  19. LISINOPRIL. [Concomitant]
     Active Substance: LISINOPRIL
     Dosage: LAST TAKEN: 14/02/2015
     Route: 048
  20. ONDANSETRON [Concomitant]
     Active Substance: ONDANSETRON
     Route: 042
     Dates: start: 20150219
  21. HYDROMORPHONE [Concomitant]
     Active Substance: HYDROMORPHONE
     Dosage: 0.2-0.4 MG
     Route: 042
  22. LIDOCAINE. [Concomitant]
     Active Substance: LIDOCAINE
     Route: 042
     Dates: start: 20150219
  23. SUCCINYLCHOLINE [Concomitant]
     Active Substance: SUCCINYLCHOLINE
     Route: 042
     Dates: start: 20150219
  24. PANCRELIPASE. [Concomitant]
     Active Substance: PANCRELIPASE
     Dosage: WITH MEALS
     Route: 048
  25. ROCURONIUM [Concomitant]
     Active Substance: ROCURONIUM BROMIDE
     Route: 042
     Dates: start: 20150219
  26. OMEPRAZOLE. [Concomitant]
     Active Substance: OMEPRAZOLE
     Route: 048
  27. MIDAZOLAM [Concomitant]
     Active Substance: MIDAZOLAM HYDROCHLORIDE
     Route: 042
     Dates: start: 20150219
  28. FENTANYL. [Concomitant]
     Active Substance: FENTANYL
     Route: 042
     Dates: start: 20150219
  29. D50W [Concomitant]
     Dosage: PRN?SYRINGE
     Route: 042

REACTIONS (6)
  - Hyperglycaemia [Recovered/Resolved]
  - Hypertension [Not Recovered/Not Resolved]
  - Mouth haemorrhage [Recovered/Resolved]
  - Infection [Not Recovered/Not Resolved]
  - Abscess [Recovering/Resolving]
  - Palmar-plantar erythrodysaesthesia syndrome [Recovered/Resolved]

NARRATIVE: CASE EVENT DATE: 20130821
